FAERS Safety Report 9127851 (Version 1)
Quarter: 2013Q1

REPORT INFORMATION
  Report Type: Spontaneous
  Country: US (occurrence: US)
  Receive Date: 20130228
  Receipt Date: 20130228
  Transmission Date: 20140127
  Serious: Yes (Other)
  Sender: FDA-Public Use
  Company Number: US-GLAXOSMITHKLINE-A1005099A

PATIENT
  Age: 63 Year
  Sex: Female

DRUGS (3)
  1. LAMICTAL [Suspect]
     Indication: PRODUCT USED FOR UNKNOWN INDICATION
     Dosage: 150MG UNKNOWN
     Route: 065
     Dates: start: 20121217
  2. LYRICA [Concomitant]
  3. DIABETES MEDICATION [Concomitant]

REACTIONS (3)
  - Convulsion [Unknown]
  - Adverse drug reaction [Unknown]
  - Treatment noncompliance [Unknown]
